FAERS Safety Report 21233767 (Version 1)
Quarter: 2022Q3

REPORT INFORMATION
  Report Type: Spontaneous
  Country: CN (occurrence: CN)
  Receive Date: 20220819
  Receipt Date: 20220819
  Transmission Date: 20221027
  Serious: Yes (Other)
  Sender: FDA-Public Use
  Company Number: CN-BAYER-2022A114708

PATIENT
  Age: 49 Year
  Sex: Male

DRUGS (1)
  1. AVELOX [Suspect]
     Active Substance: MOXIFLOXACIN HYDROCHLORIDE
     Indication: Infection
     Dosage: 250 ML, QD
     Route: 041
     Dates: start: 20220809, end: 20220809

REACTIONS (5)
  - Chills [Recovering/Resolving]
  - Hyperhidrosis [Recovering/Resolving]
  - Arrhythmia [Recovering/Resolving]
  - Seizure [Recovering/Resolving]
  - Dizziness [Recovering/Resolving]

NARRATIVE: CASE EVENT DATE: 20220809
